FAERS Safety Report 8578043-6 (Version None)
Quarter: 2012Q3

REPORT INFORMATION
  Report Type: 
  Country: None (occurrence: None)
  Receive Date: 20120808
  Receipt Date: 20120801
  Transmission Date: 20120928
  Serious: Yes (Other)
  Sender: FDA-Public Use
  Company Number: PHHY2012JP062673

PATIENT
  Sex: Male

DRUGS (4)
  1. MIGLITOL [Concomitant]
     Dosage: 150 MG, UNK
     Route: 048
     Dates: start: 20120105, end: 20120730
  2. MEMANTINE HCL [Concomitant]
     Indication: HYPOKINESIA
     Dosage: 20 MG, UNK
     Route: 048
     Dates: start: 20110105, end: 20120730
  3. EXELON [Suspect]
     Indication: HYPOKINESIA
     Dosage: 4.5 MG, DAILY
     Route: 062
     Dates: start: 20120715, end: 20120718
  4. MICAMLO [Concomitant]
     Dosage: UNK UKN, UNK
     Route: 048
     Dates: start: 20120105, end: 20120730

REACTIONS (20)
  - OEDEMA PERIPHERAL [None]
  - PALLOR [None]
  - FEELING COLD [None]
  - DYSSTASIA [None]
  - FEELING ABNORMAL [None]
  - EYELID PTOSIS [None]
  - DYSPHAGIA [None]
  - INCONTINENCE [None]
  - BLOOD PRESSURE DECREASED [None]
  - SNORING [None]
  - FATIGUE [None]
  - DIARRHOEA [None]
  - MUSCULAR WEAKNESS [None]
  - OEDEMA [None]
  - PULSE ABNORMAL [None]
  - BALANCE DISORDER [None]
  - SOMNOLENCE [None]
  - CHROMATURIA [None]
  - FEELING HOT [None]
  - FAECES DISCOLOURED [None]
